FAERS Safety Report 19802664 (Version 1)
Quarter: 2021Q3

REPORT INFORMATION
  Report Type: Report from Study
  Country: None (occurrence: US)
  Receive Date: 20210908
  Receipt Date: 20210908
  Transmission Date: 20211014
  Serious: Yes (Other)
  Sender: FDA-Public Use
  Company Number: US-ABBVIE-21K-163-4067959-00

PATIENT
  Sex: Female

DRUGS (1)
  1. HUMIRA [Suspect]
     Active Substance: ADALIMUMAB
     Indication: PRODUCT USED FOR UNKNOWN INDICATION
     Route: 058

REACTIONS (5)
  - Aortic aneurysm [Recovered/Resolved]
  - Adverse reaction [Unknown]
  - Osteoporosis [Not Recovered/Not Resolved]
  - Disease risk factor [Recovered/Resolved]
  - Liposuction [Recovering/Resolving]
